FAERS Safety Report 4805709-3 (Version None)
Quarter: 2005Q4

REPORT INFORMATION
  Report Type: 
  Country: None (occurrence: None)
  Receive Date: 20051018
  Receipt Date: 20051004
  Transmission Date: 20060501
  Serious: Yes (Hospitalization)
  Sender: FDA-Public Use
  Company Number: 218355

PATIENT
  Age: 67 Year
  Sex: Male
  Weight: 87.7 kg

DRUGS (9)
  1. AVASTIN [Suspect]
     Indication: COLON CANCER
     Dosage: 5 MG/KG, Q2W, INTRAVENOUS
     Route: 042
     Dates: start: 20050907, end: 20050923
  2. XELODA [Suspect]
     Indication: COLON CANCER
     Dosage: 6000 MG, BID
     Dates: start: 20050907, end: 20050927
  3. OXALIPLATIN (OXALIPLATIN) [Suspect]
     Indication: COLON CANCER
     Dosage: 85 MG/M2, Q2W, INTRAVENOUS
     Route: 042
     Dates: start: 20050907, end: 20050923
  4. ATENOLOL [Concomitant]
  5. CENTRUM SILVER (MINERALS NOS, MULTIVITAMINS NOS) [Concomitant]
  6. HCTZ (HYDROCHLOROTHIAZIDE) [Concomitant]
  7. ARANESP [Concomitant]
  8. FERROUS SULFATE TAB [Concomitant]
  9. ATIVAN [Concomitant]

REACTIONS (27)
  - ASPIRATION [None]
  - ATELECTASIS [None]
  - BACTERIAL INFECTION [None]
  - BLOOD CALCIUM DECREASED [None]
  - BLOOD CHLORIDE DECREASED [None]
  - BLOOD CREATININE INCREASED [None]
  - BLOOD GLUCOSE INCREASED [None]
  - BLOOD POTASSIUM DECREASED [None]
  - BODY TEMPERATURE INCREASED [None]
  - BRAIN OEDEMA [None]
  - CARDIOMEGALY [None]
  - CEREBRAL HAEMORRHAGE [None]
  - CHILLS [None]
  - COLON CANCER METASTATIC [None]
  - CONVULSION [None]
  - DIARRHOEA [None]
  - ELECTROENCEPHALOGRAM ABNORMAL [None]
  - FAECES DISCOLOURED [None]
  - HICCUPS [None]
  - HYPONATRAEMIA [None]
  - MALIGNANT NEOPLASM PROGRESSION [None]
  - METASTASES TO CENTRAL NERVOUS SYSTEM [None]
  - PLEURAL EFFUSION [None]
  - PULMONARY CONGESTION [None]
  - SIMPLE PARTIAL SEIZURES [None]
  - THERAPY NON-RESPONDER [None]
  - UNRESPONSIVE TO VERBAL STIMULI [None]
